FAERS Safety Report 12844960 (Version 2)
Quarter: 2017Q2

REPORT INFORMATION
  Report Type: Spontaneous
  Country: US (occurrence: US)
  Receive Date: 20161013
  Receipt Date: 20170406
  Transmission Date: 20170830
  Serious: Yes (Other)
  Sender: FDA-Public Use
  Company Number: US-BAUSCH-BL-2016-022162

PATIENT
  Sex: Male
  Weight: 63.56 kg

DRUGS (2)
  1. GABAPENTIN. [Concomitant]
     Active Substance: GABAPENTIN
     Indication: PRURITUS
  2. CERAVE ITCH RELIEF MOISTURIZING [Suspect]
     Active Substance: PRAMOXINE HYDROCHLORIDE
     Indication: PRURITUS
     Dosage: 3-5 TIMES A DAY
     Route: 061
     Dates: start: 2016, end: 20160927

REACTIONS (3)
  - Malaise [Unknown]
  - Drug ineffective [Unknown]
  - Weight decreased [Unknown]

NARRATIVE: CASE EVENT DATE: 2016
